FAERS Safety Report 13049347 (Version 3)
Quarter: 2017Q1

REPORT INFORMATION
  Report Type: Spontaneous
  Country: US (occurrence: US)
  Receive Date: 20161221
  Receipt Date: 20170210
  Transmission Date: 20170428
  Serious: Yes (Life-Threatening, Hospitalization, Disabling, Other)
  Sender: FDA-Public Use
  Company Number: US-009507513-1612USA007745

PATIENT
  Age: 40 Year
  Sex: Male
  Weight: 97 kg

DRUGS (5)
  1. SENNA [Concomitant]
     Active Substance: SENNA LEAF\SENNOSIDES\SENNOSIDES A AND B
     Dosage: UNK
  2. HYDROCODONE [Concomitant]
     Active Substance: HYDROCODONE
     Dosage: UNK
  3. COLACE [Concomitant]
     Active Substance: DOCUSATE SODIUM
     Dosage: UNK
  4. KEYTRUDA [Suspect]
     Active Substance: PEMBROLIZUMAB
     Indication: METASTATIC SQUAMOUS CELL CARCINOMA
     Dosage: 200 MG Q3W
     Route: 042
     Dates: start: 20161123, end: 20161123
  5. KEYTRUDA [Suspect]
     Active Substance: PEMBROLIZUMAB
     Dosage: 200 MG Q3W
     Route: 042
     Dates: start: 20170117, end: 20170117

REACTIONS (12)
  - Blood potassium decreased [Not Recovered/Not Resolved]
  - Fatigue [Recovered/Resolved]
  - Hypercalcaemia [Not Recovered/Not Resolved]
  - Parathyroid hormone-related protein increased [Unknown]
  - Product use issue [Unknown]
  - Hypercalcaemia [Not Recovered/Not Resolved]
  - Blood sodium decreased [Not Recovered/Not Resolved]
  - Blood phosphorus decreased [Not Recovered/Not Resolved]
  - Autoimmune disorder [Unknown]
  - Blood creatinine increased [Recovered/Resolved]
  - Endocrine disorder [Unknown]
  - Constipation [Recovering/Resolving]

NARRATIVE: CASE EVENT DATE: 20161123
